FAERS Safety Report 5618614-X (Version None)
Quarter: 2008Q1

REPORT INFORMATION
  Report Type: 
  Country: None (occurrence: None)
  Receive Date: 20080207
  Receipt Date: 20080123
  Transmission Date: 20080703
  Serious: Yes (Other)
  Sender: FDA-Public Use
  Company Number: JP-ELI_LILLY_AND_COMPANY-JP200712001643

PATIENT
  Sex: Male
  Weight: 56.8 kg

DRUGS (30)
  1. PEMETREXED [Suspect]
     Indication: PLEURAL MESOTHELIOMA MALIGNANT
     Dosage: 620 MG, OTHER
     Route: 042
     Dates: start: 20070208, end: 20070208
  2. PEMETREXED [Suspect]
     Dosage: 415 MG, OTHER
     Route: 042
     Dates: start: 20070228, end: 20070509
  3. CISPLATIN [Suspect]
     Indication: PLEURAL MESOTHELIOMA MALIGNANT
     Dosage: 90 MG, OTHER
     Route: 042
     Dates: start: 20070208, end: 20070208
  4. CISPLATIN [Suspect]
     Dosage: 63 MG, OTHER
     Route: 042
     Dates: start: 20070228, end: 20070509
  5. PANVITAN [Concomitant]
     Dosage: 1 G, DAILY (1/D)
     Route: 048
     Dates: start: 20070131, end: 20070524
  6. CYANOCOBALAMIN [Concomitant]
     Dosage: 1 MG, DAILY (1/D)
     Route: 030
     Dates: start: 20070131, end: 20070131
  7. HYDROXOCOBALAMIN ACETATE [Concomitant]
     Dosage: 1 MG, DAILY (1/D)
     Route: 030
     Dates: start: 20070404, end: 20070404
  8. MORPHINE [Concomitant]
     Indication: CANCER PAIN
     Dosage: 50 MG, DAILY (1/D)
     Route: 058
     Dates: start: 20060912
  9. MORPHINE [Concomitant]
     Dosage: 420 MG, DAILY (1/D)
     Route: 048
     Dates: start: 20061219
  10. DUROTEP [Concomitant]
     Indication: CANCER PAIN
     Dosage: 17.5 MG, DAILY (1/D)
     Route: 062
     Dates: start: 20061011
  11. DUROTEP [Concomitant]
     Dosage: 20 MG, UNK
     Route: 058
     Dates: start: 20070309
  12. NASEA [Concomitant]
     Indication: PROPHYLAXIS
     Dosage: 0.3 MG, DAILY (1/D)
     Route: 042
     Dates: start: 20070208, end: 20070208
  13. NASEA [Concomitant]
     Dosage: 0.1 MG, DAILY (1/D)
     Route: 048
     Dates: start: 20070209, end: 20070213
  14. NASEA [Concomitant]
     Dosage: 0.3 MG, DAILY (1/D)
     Route: 042
     Dates: start: 20070228, end: 20070228
  15. NASEA [Concomitant]
     Dosage: 0.1 MG, DAILY (1/D)
     Route: 048
     Dates: start: 20070301, end: 20070305
  16. NASEA [Concomitant]
     Dosage: 0.3 MG, DAILY (1/D)
     Route: 042
     Dates: start: 20070322, end: 20070322
  17. NASEA [Concomitant]
     Dosage: 0.1 MG, DAILY (1/D)
     Route: 048
     Dates: start: 20070323, end: 20070327
  18. NASEA [Concomitant]
     Dosage: 0.3 MG, DAILY (1/D)
     Route: 042
     Dates: start: 20070411, end: 20070411
  19. NASEA [Concomitant]
     Dosage: 0.3 MG, DAILY (1/D)
     Route: 042
     Dates: start: 20070509, end: 20070509
  20. DECADRON [Concomitant]
     Indication: PROPHYLAXIS
     Dosage: 8 MG, DAILY (1/D)
     Route: 042
     Dates: start: 20070208, end: 20070208
  21. DECADRON [Concomitant]
     Dosage: 8 MG, DAILY (1/D)
     Route: 042
     Dates: start: 20070228, end: 20070228
  22. DECADRON [Concomitant]
     Dosage: 8 MG, DAILY (1/D)
     Route: 042
     Dates: start: 20070322, end: 20070322
  23. DECADRON [Concomitant]
     Dosage: 8 MG, DAILY (1/D)
     Route: 042
     Dates: start: 20070411, end: 20070411
  24. DECADRON [Concomitant]
     Dosage: 8 MG, DAILY (1/D)
     Route: 042
     Dates: start: 20070509, end: 20070509
  25. NEUTROGIN [Concomitant]
     Indication: WHITE BLOOD CELL COUNT DECREASED
     Dosage: 100 UG, DAILY (1/D)
     Route: 058
     Dates: start: 20070216, end: 20070224
  26. NEUTROGIN [Concomitant]
     Dosage: 100 UG, DAILY (1/D)
     Route: 058
     Dates: start: 20070305, end: 20070312
  27. NEUTROGIN [Concomitant]
     Dosage: 100 UG, DAILY (1/D)
     Route: 058
     Dates: start: 20070331, end: 20070402
  28. NEUTROGIN [Concomitant]
     Dosage: 100 UG, DAILY (1/D)
     Route: 058
     Dates: start: 20070418, end: 20070419
  29. UNASYN /00917901/ [Concomitant]
     Indication: PYOTHORAX
     Dosage: 6 G, DAILY (1/D)
     Route: 042
     Dates: start: 20070522, end: 20070523
  30. VANCOMYCIN [Concomitant]
     Indication: PYOTHORAX
     Dosage: 1 G, DAILY (1/D)
     Route: 042
     Dates: start: 20070524, end: 20070529

REACTIONS (9)
  - ANAEMIA [None]
  - BLOOD BILIRUBIN INCREASED [None]
  - BLOOD LACTATE DEHYDROGENASE INCREASED [None]
  - DISEASE PROGRESSION [None]
  - GAMMA-GLUTAMYLTRANSFERASE INCREASED [None]
  - NEUTROPHIL COUNT DECREASED [None]
  - PLATELET COUNT DECREASED [None]
  - PYOTHORAX [None]
  - WHITE BLOOD CELL COUNT DECREASED [None]
